FAERS Safety Report 21870730 (Version 1)
Quarter: 2023Q1

REPORT INFORMATION
  Report Type: Other
  Country: GB (occurrence: GB)
  Receive Date: 20230117
  Receipt Date: 20230117
  Transmission Date: 20230417
  Serious: Yes (Other)
  Sender: FDA-Public Use
  Company Number: None

PATIENT
  Age: 21 Year
  Sex: Female
  Weight: 57 kg

DRUGS (1)
  1. SERTRALINE [Suspect]
     Active Substance: SERTRALINE HYDROCHLORIDE
     Indication: Depression
     Dosage: 50 MILLIGRAM
     Route: 065
     Dates: start: 20221216

REACTIONS (6)
  - Vision blurred [Not Recovered/Not Resolved]
  - Illness [Unknown]
  - Headache [Unknown]
  - Migraine [Unknown]
  - Blindness [Unknown]
  - Self-induced vomiting [Unknown]

NARRATIVE: CASE EVENT DATE: 20221216
